FAERS Safety Report 16771888 (Version 1)
Quarter: 2019Q3

REPORT INFORMATION
  Report Type: Spontaneous
  Country: JP (occurrence: JP)
  Receive Date: 20190904
  Receipt Date: 20190904
  Transmission Date: 20191005
  Serious: Yes (Congenital Anomaly, Other)
  Sender: FDA-Public Use
  Company Number: JP-LUPIN PHARMACEUTICALS INC.-2019-05726

PATIENT
  Weight: .38 kg

DRUGS (2)
  1. AMLODIPINE [Suspect]
     Active Substance: AMLODIPINE BESYLATE
     Indication: ESSENTIAL HYPERTENSION
     Dosage: UNK, (21W2D TO DELIVERY)
     Route: 064
  2. METHYLDOPA. [Suspect]
     Active Substance: METHYLDOPA
     Indication: ESSENTIAL HYPERTENSION
     Dosage: UNK, (21W0D TO DELIVERY)
     Route: 064

REACTIONS (5)
  - Low birth weight baby [Unknown]
  - Congenital spinal cord anomaly [Unknown]
  - Gastrointestinal malformation [Unknown]
  - Foetal exposure during pregnancy [Unknown]
  - Premature baby [Unknown]
